FAERS Safety Report 9333835 (Version 1)
Quarter: 2013Q2

REPORT INFORMATION
  Report Type: Spontaneous
  Country: CN (occurrence: None)
  Receive Date: 20130604
  Receipt Date: 20130604
  Transmission Date: 20140414
  Serious: Yes (Hospitalization)
  Sender: FDA-Public Use
  Company Number: 2013000116

PATIENT
  Age: 90 Year
  Sex: Female
  Weight: 57 kg

DRUGS (1)
  1. ACEON [Suspect]
     Indication: ESSENTIAL HYPERTENSION
     Route: 048
     Dates: start: 20120218, end: 20120301

REACTIONS (4)
  - Loss of consciousness [None]
  - Convulsion [None]
  - No therapeutic response [None]
  - Hyperkalaemia [None]
